FAERS Safety Report 13794418 (Version 2)
Quarter: 2017Q3

REPORT INFORMATION
  Report Type: Spontaneous
  Country: US (occurrence: US)
  Receive Date: 20170726
  Receipt Date: 20170905
  Transmission Date: 20171127
  Serious: No
  Sender: FDA-Public Use
  Company Number: US-PFIZER INC-2017323944

PATIENT
  Age: 48 Year
  Sex: Male

DRUGS (1)
  1. XELJANZ XR [Suspect]
     Active Substance: TOFACITINIB CITRATE
     Dosage: 11 MG, UNK

REACTIONS (10)
  - Arthralgia [Unknown]
  - Joint swelling [Unknown]
  - Myalgia [Unknown]
  - Rotator cuff syndrome [Unknown]
  - Muscular weakness [Unknown]
  - Pain in extremity [Unknown]
  - Hypoaesthesia [Unknown]
  - Joint stiffness [Unknown]
  - Nausea [Unknown]
  - Muscle spasms [Unknown]
